FAERS Safety Report 10418934 (Version 1)
Quarter: 2014Q3

REPORT INFORMATION
  Report Type: Spontaneous
  Country: GB (occurrence: GB)
  Receive Date: 20140829
  Receipt Date: 20140829
  Transmission Date: 20150326
  Serious: Yes (Other)
  Sender: FDA-Public Use
  Company Number: PHHY2014GB105131

PATIENT
  Age: 40 Year
  Sex: Female
  Weight: 109.31 kg

DRUGS (10)
  1. METFORMIN [Concomitant]
     Active Substance: METFORMIN HYDROCHLORIDE
  2. VITAMIN B12 [Concomitant]
     Active Substance: CYANOCOBALAMIN
  3. LOFEPRAMINE [Concomitant]
     Active Substance: LOFEPRAMINE
  4. SIMVASTATIN. [Suspect]
     Active Substance: SIMVASTATIN
     Indication: BLOOD CHOLESTEROL INCREASED
     Dosage: 40 MG
     Route: 048
     Dates: start: 20140731, end: 20140813
  5. CETIRIZINE [Concomitant]
     Active Substance: CETIRIZINE HYDROCHLORIDE
  6. NORETHISTERONE [Concomitant]
     Active Substance: NORETHINDRONE
  7. OXYBUTYNIN [Concomitant]
     Active Substance: OXYBUTYNIN
  8. SERETIDE [Concomitant]
     Active Substance: FLUTICASONE FUROATE\SALMETEROL XINAFOATE
  9. VITAMIN D [Concomitant]
     Active Substance: CHOLECALCIFEROL
  10. TRAMADOL [Concomitant]
     Active Substance: TRAMADOL

REACTIONS (7)
  - Chest pain [Not Recovered/Not Resolved]
  - Trismus [Not Recovered/Not Resolved]
  - Condition aggravated [Unknown]
  - Muscle spasms [Not Recovered/Not Resolved]
  - Insomnia [Not Recovered/Not Resolved]
  - Myalgia [Not Recovered/Not Resolved]
  - Myositis [Not Recovered/Not Resolved]

NARRATIVE: CASE EVENT DATE: 20140810
